FAERS Safety Report 12484359 (Version 1)
Quarter: 2016Q2

REPORT INFORMATION
  Report Type: Spontaneous
  Country: US (occurrence: None)
  Receive Date: 20160620
  Receipt Date: 20160620
  Transmission Date: 20160815
  Serious: No
  Sender: FDA-Public Use
  Company Number: None

PATIENT
  Age: 65 Year
  Sex: Male
  Weight: 52.3 kg

DRUGS (1)
  1. CEFAZOLIN [Suspect]
     Active Substance: CEFAZOLIN
     Indication: CYSTOSCOPY
     Route: 042
     Dates: start: 20160504, end: 20160504

REACTIONS (1)
  - Hypotension [None]

NARRATIVE: CASE EVENT DATE: 20160614
